FAERS Safety Report 6109874-X (Version None)
Quarter: 2009Q1

REPORT INFORMATION
  Report Type: 
  Country: None (occurrence: None)
  Receive Date: 20090310
  Receipt Date: 20080724
  Transmission Date: 20090719
  Serious: No
  Sender: FDA-Public Use
  Company Number: A0739278A

PATIENT
  Age: 29 Year
  Sex: Male

DRUGS (1)
  1. TARGET ORIGINAL 2MG [Suspect]
     Dates: start: 20080722, end: 20080722

REACTIONS (3)
  - PHARYNGEAL OEDEMA [None]
  - SPEECH DISORDER [None]
  - TONSILLAR DISORDER [None]
